FAERS Safety Report 4776638-9 (Version None)
Quarter: 2005Q3

REPORT INFORMATION
  Report Type: 
  Country: None (occurrence: None)
  Receive Date: 20050923
  Receipt Date: 20041028
  Transmission Date: 20060218
  Serious: Yes (Hospitalization)
  Sender: FDA-Public Use
  Company Number: 2004AP05521

PATIENT
  Age: 889 Month
  Sex: Female
  Weight: 54 kg

DRUGS (2)
  1. IRESSA [Suspect]
     Indication: NON-SMALL CELL LUNG CANCER
     Route: 048
     Dates: start: 20030208
  2. IRESSA [Suspect]
     Indication: LUNG ADENOCARCINOMA
     Route: 048
     Dates: start: 20030208

REACTIONS (3)
  - DISEASE RECURRENCE [None]
  - ESCHERICHIA INFECTION [None]
  - URINARY TRACT INFECTION [None]
